FAERS Safety Report 17765855 (Version 3)
Quarter: 2020Q2

REPORT INFORMATION
  Report Type: Report from Study
  Country: DE (occurrence: DE)
  Receive Date: 20200511
  Receipt Date: 20200625
  Transmission Date: 20200714
  Serious: Yes (Other)
  Sender: FDA-Public Use
  Company Number: DE-ROCHE-2206725

PATIENT
  Age: 51 Year
  Sex: Female
  Weight: 72 kg

DRUGS (6)
  1. HISTAKUT [Suspect]
     Active Substance: DIMETHINDENE MALEATE
     Indication: PREMEDICATION
     Route: 042
     Dates: start: 20180927, end: 20180927
  2. METYPRED [METHYLPREDNISOLONE] [Suspect]
     Active Substance: METHYLPREDNISOLONE
     Indication: PREMEDICATION
     Route: 042
     Dates: start: 20180927, end: 20180927
  3. L-THYROX [Concomitant]
     Active Substance: LEVOTHYROXINE SODIUM
     Indication: THYROID DISORDER
     Route: 048
     Dates: start: 201608
  4. DEKRISTOL [Concomitant]
     Active Substance: CHOLECALCIFEROL
     Dosage: VITAMIN D PROPHYLAXIS
     Route: 048
     Dates: start: 201611
  5. OCRELIZUMAB. [Suspect]
     Active Substance: OCRELIZUMAB
     Indication: MULTIPLE SCLEROSIS
     Route: 042
     Dates: start: 20180927, end: 20180927
  6. RANITIC [Suspect]
     Active Substance: RANITIDINE HYDROCHLORIDE
     Indication: PREMEDICATION
     Route: 042
     Dates: start: 20180927, end: 20180927

REACTIONS (4)
  - Nausea [Recovered/Resolved]
  - Hypotension [Recovered/Resolved]
  - Circulatory collapse [Recovered/Resolved]
  - Mental fatigue [Not Recovered/Not Resolved]

NARRATIVE: CASE EVENT DATE: 20180927
